FAERS Safety Report 4911251-1 (Version None)
Quarter: 2006Q1

REPORT INFORMATION
  Report Type: 
  Country: None (occurrence: None)
  Receive Date: 20060209
  Receipt Date: 20060202
  Transmission Date: 20060701
  Serious: Yes (Hospitalization, Other)
  Sender: FDA-Public Use
  Company Number: HQWYE649803FEB06

PATIENT
  Age: 73 Year
  Sex: Female

DRUGS (2)
  1. ADVIL [Suspect]
     Indication: VIRAL INFECTION
     Dosage: ORAL
     Route: 048
     Dates: start: 20060116, end: 20060121
  2. ACETAMINOPHEN [Suspect]
     Indication: VIRAL INFECTION

REACTIONS (3)
  - CYTOLYTIC HEPATITIS [None]
  - DERMATITIS BULLOUS [None]
  - THROMBOCYTOPENIA [None]
